FAERS Safety Report 15285247 (Version 1)
Quarter: 2018Q3

REPORT INFORMATION
  Report Type: Spontaneous
  Country: US (occurrence: US)
  Receive Date: 20180801
  Receipt Date: 20180801
  Transmission Date: 20181010
  Serious: No
  Sender: FDA-Public Use
  Company Number: None

PATIENT
  Age: 69 Year
  Sex: Male
  Weight: 111.13 kg

DRUGS (17)
  1. LEVOFLOXACIN 750MG TAB [Suspect]
     Active Substance: LEVOFLOXACIN
     Indication: BRONCHITIS
     Dosage: ?          QUANTITY:1 DF DOSAGE FORM;?
     Route: 048
     Dates: start: 20160407, end: 20160413
  2. ASPIRIN. [Concomitant]
     Active Substance: ASPIRIN
  3. METOPROLOL TART [Concomitant]
     Active Substance: METOPROLOL TARTRATE
  4. NITROGLYCER [Concomitant]
  5. MULTIMINERAL [Concomitant]
  6. VITAMIN D3 [Concomitant]
     Active Substance: CHOLECALCIFEROL
  7. TYLENOL EXTRA STRENGTH [Concomitant]
     Active Substance: ACETAMINOPHEN
  8. FISH OIL [Concomitant]
     Active Substance: FISH OIL
  9. GINGER POWDER [Concomitant]
  10. SIMVASTATIN. [Concomitant]
     Active Substance: SIMVASTATIN
  11. RANITIDINE. [Concomitant]
     Active Substance: RANITIDINE
  12. COMPLETE MULTIVITAMIN [Concomitant]
     Active Substance: VITAMINS
  13. PLAVIX [Concomitant]
     Active Substance: CLOPIDOGREL BISULFATE
  14. OMEGA?3 ACIDS [Concomitant]
     Active Substance: OMEGA-3 FATTY ACIDS
  15. ALLERGY RELIEF NOS [Concomitant]
     Active Substance: CETIRIZINE HYDROCHLORIDE OR DIPHENHYDRAMINE HYDROCHLORIDE OR FEXOFENADINE HYDROCHLORIDE OR LORATADINE
  16. PANTOPRAZOLE SOD [Concomitant]
     Active Substance: PANTOPRAZOLE SODIUM
  17. TURMERIC CURCUMIN [Concomitant]
     Active Substance: HERBALS\TURMERIC

REACTIONS (4)
  - Pain [None]
  - Paraesthesia [None]
  - Groin pain [None]
  - Arthralgia [None]

NARRATIVE: CASE EVENT DATE: 20160415
